FAERS Safety Report 5266004-4 (Version None)
Quarter: 2007Q1

REPORT INFORMATION
  Report Type: 
  Country: None (occurrence: None)
  Receive Date: 20070312
  Receipt Date: 20070312
  Transmission Date: 20070707
  Serious: No
  Sender: FDA-Public Use
  Company Number: None

PATIENT
  Age: 19 Year
  Sex: Female
  Weight: 54.4316 kg

DRUGS (1)
  1. PREVIFEM [Suspect]
     Indication: CONTRACEPTION
     Dosage: 1 DAILY PO
     Route: 048
     Dates: start: 20070207

REACTIONS (2)
  - DYSURIA [None]
  - NAUSEA [None]
